FAERS Safety Report 11247996 (Version 1)
Quarter: 2015Q3

REPORT INFORMATION
  Report Type: Spontaneous
  Country: US (occurrence: None)
  Receive Date: 20150707
  Receipt Date: 20150707
  Transmission Date: 20151125
  Serious: Yes (Hospitalization)
  Sender: FDA-Public Use
  Company Number: None

PATIENT
  Age: 68 Year
  Sex: Female
  Weight: 66 kg

DRUGS (3)
  1. MERCAPTOPURINE. [Suspect]
     Active Substance: MERCAPTOPURINE
     Dates: end: 20150301
  2. CYTARABINE. [Suspect]
     Active Substance: CYTARABINE
     Dates: end: 20150226
  3. CYCLOPHOSPHAMIDE. [Suspect]
     Active Substance: CYCLOPHOSPHAMIDE
     Dates: end: 20150216

REACTIONS (12)
  - Pyrexia [None]
  - Mucosal inflammation [None]
  - Streptococcus test positive [None]
  - Transaminases increased [None]
  - Hypovolaemia [None]
  - Vomiting [None]
  - Hypophagia [None]
  - Blood bilirubin increased [None]
  - Candida infection [None]
  - Fungaemia [None]
  - Tachycardia [None]
  - Nausea [None]

NARRATIVE: CASE EVENT DATE: 20150302
